FAERS Safety Report 14237252 (Version 1)
Quarter: 2017Q4

REPORT INFORMATION
  Report Type: Report from Study
  Country: US (occurrence: US)
  Receive Date: 20171129
  Receipt Date: 20171129
  Transmission Date: 20180321
  Serious: Yes (Hospitalization)
  Sender: FDA-Public Use
  Company Number: US-JNJFOC-20171134117

PATIENT
  Age: 53 Year
  Sex: Female

DRUGS (5)
  1. CENTRUM [Concomitant]
     Active Substance: VITAMINS
  2. FOLIC ACID. [Concomitant]
     Active Substance: FOLIC ACID
  3. PREDNISONE. [Concomitant]
     Active Substance: PREDNISONE
  4. GAZYVA [Concomitant]
     Active Substance: OBINUTUZUMAB
  5. IMBRUVICA [Suspect]
     Active Substance: IBRUTINIB
     Indication: CHRONIC LYMPHOCYTIC LEUKAEMIA
     Route: 048
     Dates: start: 20170817, end: 201711

REACTIONS (1)
  - Cerebral haemorrhage [Not Recovered/Not Resolved]

NARRATIVE: CASE EVENT DATE: 20171119
